FAERS Safety Report 15133946 (Version 2)
Quarter: 2018Q3

REPORT INFORMATION
  Report Type: Spontaneous
  Country: GB (occurrence: GB)
  Receive Date: 20180712
  Receipt Date: 20180731
  Transmission Date: 20181010
  Serious: Yes (Hospitalization)
  Sender: FDA-Public Use
  Company Number: GB-MYLANLABS-2018M1051752

PATIENT
  Age: 47 Year
  Sex: Male
  Weight: 93 kg

DRUGS (3)
  1. VALPROATE SEMISODIUM [Concomitant]
     Active Substance: DIVALPROEX SODIUM
     Indication: AFFECTIVE DISORDER
     Dosage: 750 MG, UNK
     Route: 048
     Dates: start: 201112
  2. CLOZARIL [Suspect]
     Active Substance: CLOZAPINE
     Dosage: 325 MG, PM
     Route: 048
     Dates: start: 20180726
  3. CLOZARIL [Suspect]
     Active Substance: CLOZAPINE
     Indication: SCHIZOPHRENIA
     Dosage: UNK
     Route: 048
     Dates: start: 20120521

REACTIONS (2)
  - Drug dose omission [Recovered/Resolved]
  - Schizophrenia [Recovering/Resolving]

NARRATIVE: CASE EVENT DATE: 2018
